FAERS Safety Report 17404306 (Version 2)
Quarter: 2020Q2

REPORT INFORMATION
  Report Type: Report from Study
  Country: US (occurrence: US)
  Receive Date: 20200211
  Receipt Date: 20200422
  Transmission Date: 20200713
  Serious: Yes (Other)
  Sender: FDA-Public Use
  Company Number: US-UCBSA-2020005648

PATIENT
  Age: 25 Year
  Sex: Female
  Weight: 68 kg

DRUGS (17)
  1. MTX [METHOTREXATE] [Concomitant]
     Active Substance: METHOTREXATE SODIUM
     Indication: RHEUMATOID ARTHRITIS
     Dosage: METHATREXATE SODIUM 25MG/ML, INJECT 0.9 MILLILITER, WEEKLY (QW)
     Route: 030
     Dates: start: 20170912, end: 20180621
  2. LO LOESTRIN FE [Concomitant]
     Active Substance: ETHINYL ESTRADIOL\NORETHINDRONE ACETATE
     Indication: PRODUCT USED FOR UNKNOWN INDICATION
     Dosage: 1 MG-10MCG (24)/10 MCG (2) TABLET
     Route: 048
  3. PREDNISONE. [Concomitant]
     Active Substance: PREDNISONE
     Dosage: 20 MILLIGRAM, ONCE DAILY (QD)
     Route: 048
     Dates: start: 2018
  4. IBUPROFEN. [Concomitant]
     Active Substance: IBUPROFEN
     Indication: PAIN
     Dosage: 800 MILLIGRAM, 3X/DAY (TID) WITH FOOD
     Route: 048
     Dates: start: 20180329
  5. CERTOLIZUMAB PEGOL [Suspect]
     Active Substance: CERTOLIZUMAB PEGOL
     Dosage: UNK, MONTHLY (QM)
     Route: 058
     Dates: start: 20180904, end: 20181101
  6. CERTOLIZUMAB PEGOL [Suspect]
     Active Substance: CERTOLIZUMAB PEGOL
     Dosage: UNK, MONTHLY (QM)
     Route: 058
     Dates: start: 20180904, end: 20181101
  7. PREDNISONE. [Concomitant]
     Active Substance: PREDNISONE
     Indication: PRODUCT USED FOR UNKNOWN INDICATION
     Dosage: 2 TABLETS A DAY FOR 2WEEKS
     Route: 048
     Dates: start: 20170912, end: 2017
  8. INSULIN [Concomitant]
     Active Substance: INSULIN NOS
     Indication: PRODUCT USED FOR UNKNOWN INDICATION
     Dosage: SYRINGE-NEEDLE-U- 100 1 ML 25 GAUGE X5/8^
     Route: 030
     Dates: start: 20170411
  9. ACTEMRA [Concomitant]
     Active Substance: TOCILIZUMAB
     Indication: RHEUMATOID ARTHRITIS
     Dosage: ACTEMRA 200 MG/10 ML (20 MG/ML) SOLUTION 520 MILLIGRAM, MONTHLY (QM)
     Route: 042
     Dates: start: 20170606, end: 20180621
  10. PREDNISONE. [Concomitant]
     Active Substance: PREDNISONE
     Dosage: UNK
  11. TYLENOL [Concomitant]
     Active Substance: ACETAMINOPHEN
     Indication: PAIN
  12. PREDNISONE. [Concomitant]
     Active Substance: PREDNISONE
     Dosage: 1 TABLETS A DAY FOR 2WEEKS
     Route: 048
     Dates: start: 2017, end: 20180621
  13. CERTOLIZUMAB PEGOL [Suspect]
     Active Substance: CERTOLIZUMAB PEGOL
     Dosage: 400 MILLIGRAM, EV 2 WEEKS(QOW)
     Route: 058
     Dates: start: 20180702, end: 20180802
  14. PREDNISONE. [Concomitant]
     Active Substance: PREDNISONE
     Dosage: PREDNISONE 5 MG, 3 TABLET
     Route: 048
     Dates: start: 20180802
  15. LEUCOVORIN CALCIUM. [Concomitant]
     Active Substance: LEUCOVORIN CALCIUM
     Indication: PRODUCT USED FOR UNKNOWN INDICATION
     Dosage: 5 MILLIGRAM, WEEKLY (QW) 12HOURS AFTER METHATREXATE DOSE
     Route: 048
     Dates: start: 20170912, end: 20180621
  16. CERTOLIZUMAB PEGOL [Suspect]
     Active Substance: CERTOLIZUMAB PEGOL
     Indication: RHEUMATOID ARTHRITIS
     Dosage: 400 MILLIGRAM, EV 2 WEEKS(QOW)
     Route: 058
     Dates: start: 20180702, end: 20180802
  17. PREDNISONE. [Concomitant]
     Active Substance: PREDNISONE
     Dosage: 10 MILLIGRAM, ONCE DAILY (QD)
     Route: 048
     Dates: start: 2018, end: 20180802

REACTIONS (2)
  - Maternal exposure during pregnancy [Unknown]
  - Premature delivery [Unknown]

NARRATIVE: CASE EVENT DATE: 20180702
